FAERS Safety Report 4846253-7 (Version None)
Quarter: 2005Q4

REPORT INFORMATION
  Report Type: 
  Country: None (occurrence: None)
  Receive Date: 20051130
  Receipt Date: 20051115
  Transmission Date: 20060501
  Serious: Yes (Death)
  Sender: FDA-Public Use
  Company Number: 2009

PATIENT
  Age: 83 Year
  Sex: Female

DRUGS (10)
  1. AVINZA [Suspect]
     Indication: PAIN
     Dosage: 30 MG/M^2 QD PO
     Route: 048
     Dates: start: 20051103, end: 20051101
  2. ANASTROZOLE [Concomitant]
  3. ATENOLOL [Concomitant]
  4. CALCIUM ACETATE [Concomitant]
  5. DOCUSATE SODIUM [Concomitant]
  6. GLIMEPIRIDE [Concomitant]
  7. NITROGLYCERIN [Concomitant]
  8. QUINAPRIL [Concomitant]
  9. SIMVASTATIN [Concomitant]
  10. WARFARIN SODIUM [Concomitant]

REACTIONS (3)
  - BRADYCARDIA [None]
  - RESPIRATORY ARREST [None]
  - TREATMENT NONCOMPLIANCE [None]
